FAERS Safety Report 7983778-X (Version None)
Quarter: 2011Q4

REPORT INFORMATION
  Report Type: 
  Country: None (occurrence: None)
  Receive Date: 20111215
  Receipt Date: 20110909
  Transmission Date: 20120403
  Serious: No
  Sender: FDA-Public Use
  Company Number: PHEH2011US03896

PATIENT
  Sex: Male

DRUGS (12)
  1. VITAMIN B1 TAB [Concomitant]
  2. VYTORIN [Concomitant]
  3. LISINOPRIL [Concomitant]
  4. PLAVIX [Concomitant]
     Dosage: 300 MG, UNK
  5. VITAMIN B6 [Concomitant]
  6. LOVAZA [Concomitant]
     Dosage: 1000 MG, UNK
  7. ASPIRIN [Concomitant]
  8. MELATONIN [Concomitant]
  9. TASIGNA [Suspect]
     Dosage: 400 MG, BID
     Route: 048
  10. MAGNESIUM SULFATE [Concomitant]
  11. FLEXERIL [Concomitant]
     Dosage: 10 MG, UNK
  12. MULTI-VITAMINS [Concomitant]

REACTIONS (6)
  - GAIT DISTURBANCE [None]
  - SKIN DISCOLOURATION [None]
  - SCIATICA [None]
  - PAIN [None]
  - BURNING SENSATION [None]
  - PAIN IN EXTREMITY [None]
